FAERS Safety Report 7164661-9 (Version None)
Quarter: 2010Q4

REPORT INFORMATION
  Report Type: 
  Country: None (occurrence: None)
  Receive Date: 20101215
  Receipt Date: 20101118
  Transmission Date: 20110411
  Serious: Yes (Death, Other)
  Sender: FDA-Public Use
  Company Number: US-BAXTER-2010BH017268

PATIENT
  Age: 73 Year
  Sex: Male
  Weight: 97 kg

DRUGS (37)
  1. HEPARIN SODIUM INJECTION [Suspect]
     Indication: CENTRAL VENOUS CATHETERISATION
     Route: 042
     Dates: start: 20070910, end: 20070923
  2. HEPARIN SODIUM INJECTION [Suspect]
     Indication: ATRIAL FIBRILLATION
     Route: 042
     Dates: start: 20070910, end: 20070923
  3. HEPARIN SODIUM INJECTION [Suspect]
     Route: 042
     Dates: start: 20070909, end: 20070911
  4. HEPARIN SODIUM INJECTION [Suspect]
     Route: 042
     Dates: start: 20070909, end: 20070911
  5. HEPARIN SODIUM INJECTION [Suspect]
     Route: 042
     Dates: start: 20070913, end: 20070913
  6. HEPARIN SODIUM INJECTION [Suspect]
     Route: 042
     Dates: start: 20070913, end: 20070913
  7. HEPARIN SODIUM INJECTION [Suspect]
     Route: 042
     Dates: start: 20070918, end: 20070919
  8. HEPARIN SODIUM INJECTION [Suspect]
     Route: 042
     Dates: start: 20070918, end: 20070919
  9. HEPARIN SODIUM INJECTION [Suspect]
     Route: 042
     Dates: start: 20070921, end: 20070921
  10. HEPARIN SODIUM INJECTION [Suspect]
     Route: 042
     Dates: start: 20070921, end: 20070921
  11. HEPARIN SODIUM INJECTION [Suspect]
     Route: 042
     Dates: start: 20070921, end: 20070921
  12. HEPARIN SODIUM INJECTION [Suspect]
     Route: 042
     Dates: start: 20070921, end: 20070921
  13. HEPARIN SODIUM INJECTION [Suspect]
     Route: 042
     Dates: start: 20070923, end: 20070923
  14. HEPARIN SODIUM INJECTION [Suspect]
     Route: 042
     Dates: start: 20070923, end: 20070923
  15. HEPARIN SODIUM 5,000 UNITS IN DEXTROSE 5% [Suspect]
     Indication: ATRIAL FIBRILLATION
     Route: 042
     Dates: start: 20070914, end: 20070914
  16. HEPARIN SODIUM 5,000 UNITS IN DEXTROSE 5% [Suspect]
     Route: 042
     Dates: start: 20070914, end: 20070917
  17. HEPARIN SODIUM 5,000 UNITS IN DEXTROSE 5% [Suspect]
     Route: 042
     Dates: start: 20070921, end: 20070923
  18. HEPARIN SODIUM 5,000 UNITS IN DEXTROSE 5% [Suspect]
     Route: 042
     Dates: start: 20070914, end: 20070917
  19. HEPARIN SODIUM 5,000 UNITS IN DEXTROSE 5% [Suspect]
     Route: 042
     Dates: start: 20070921, end: 20070923
  20. INSULIN [Concomitant]
     Indication: PRODUCT USED FOR UNKNOWN INDICATION
     Route: 065
  21. SOTALOL HYDROCHLORIDE [Concomitant]
     Indication: PRODUCT USED FOR UNKNOWN INDICATION
     Route: 065
  22. LIPITOR [Concomitant]
     Indication: PRODUCT USED FOR UNKNOWN INDICATION
     Route: 065
  23. ALTACE [Concomitant]
     Indication: PRODUCT USED FOR UNKNOWN INDICATION
     Route: 065
  24. HYDROCHLOROTHIAZIDE [Concomitant]
     Indication: PRODUCT USED FOR UNKNOWN INDICATION
     Route: 065
  25. PLAVIX [Concomitant]
     Indication: PRODUCT USED FOR UNKNOWN INDICATION
     Route: 065
  26. KEPPRA [Concomitant]
     Indication: PRODUCT USED FOR UNKNOWN INDICATION
     Route: 065
  27. NITROGLYCERIN [Concomitant]
     Indication: CHEST PAIN
     Route: 065
  28. ALBUTEROL SULFATE AND IPRATROPIUM BROMIDE [Concomitant]
     Indication: PRODUCT USED FOR UNKNOWN INDICATION
     Route: 065
  29. ESOMEPRAZOLE [Concomitant]
     Indication: PRODUCT USED FOR UNKNOWN INDICATION
     Route: 065
  30. METRONIDAZOLE [Concomitant]
     Indication: PRODUCT USED FOR UNKNOWN INDICATION
     Route: 065
  31. PIPERACILLIN [Concomitant]
     Indication: PRODUCT USED FOR UNKNOWN INDICATION
     Route: 065
  32. SODIUM CHLORIDE [Concomitant]
     Indication: PRODUCT USED FOR UNKNOWN INDICATION
     Route: 065
  33. WARFARIN SODIUM [Concomitant]
     Indication: ATRIAL FIBRILLATION
     Route: 048
  34. ANCEF [Concomitant]
     Indication: CHOLECYSTITIS
     Route: 042
  35. LASIX [Concomitant]
     Indication: PRODUCT USED FOR UNKNOWN INDICATION
     Route: 042
  36. HYDROCORTISONE [Concomitant]
     Indication: PRODUCT USED FOR UNKNOWN INDICATION
     Route: 042
  37. HYDRALAZINE [Concomitant]
     Indication: PRODUCT USED FOR UNKNOWN INDICATION
     Route: 042

REACTIONS (13)
  - ACUTE RESPIRATORY FAILURE [None]
  - ANAEMIA [None]
  - BRADYCARDIA [None]
  - CARDIO-RESPIRATORY ARREST [None]
  - CHOLECYSTITIS ACUTE [None]
  - HYPOTENSION [None]
  - HYPOXIC-ISCHAEMIC ENCEPHALOPATHY [None]
  - MULTI-ORGAN FAILURE [None]
  - POST PROCEDURAL HAEMATOMA [None]
  - PYREXIA [None]
  - RENAL FAILURE ACUTE [None]
  - SEPTIC SHOCK [None]
  - VOMITING [None]
